FAERS Safety Report 5832207-0 (Version None)
Quarter: 2008Q3

REPORT INFORMATION
  Report Type: 
  Country: None (occurrence: None)
  Receive Date: 20080804
  Receipt Date: 20080725
  Transmission Date: 20090109
  Serious: Yes (Death)
  Sender: FDA-Public Use
  Company Number: JP-ABBOTT-08P-087-0467298-00

PATIENT
  Age: 79 Year
  Sex: Male

DRUGS (1)
  1. LEUPROLIDE ACETATE [Suspect]
     Indication: PROSTATE CANCER STAGE III
     Route: 058
     Dates: start: 20060526, end: 20071108

REACTIONS (2)
  - BRONCHOPULMONARY ASPERGILLOSIS [None]
  - IMMUNODEFICIENCY [None]
